FAERS Safety Report 8112188-X (Version None)
Quarter: 2012Q1

REPORT INFORMATION
  Report Type: 
  Country: None (occurrence: None)
  Receive Date: 20120203
  Receipt Date: 20120119
  Transmission Date: 20120608
  Serious: Yes (Hospitalization)
  Sender: FDA-Public Use
  Company Number: IT-UCBSA-047014

PATIENT
  Age: 74 Year
  Sex: Female

DRUGS (4)
  1. LASIX [Concomitant]
     Dosage: 25 MG
     Route: 048
  2. MONOKET [Suspect]
     Indication: CARDIAC FAILURE
     Dosage: 60 MG ONCE
     Route: 048
     Dates: start: 20111126, end: 20111126
  3. COUMADIN [Concomitant]
     Dosage: 5 MG
     Route: 048
  4. PERGASTID [Concomitant]
     Dosage: 30 MG
     Route: 048

REACTIONS (1)
  - PRESYNCOPE [None]
